FAERS Safety Report 4824740-5 (Version None)
Quarter: 2005Q4

REPORT INFORMATION
  Report Type: 
  Country: None (occurrence: None)
  Receive Date: 20051108
  Receipt Date: 20051025
  Transmission Date: 20060501
  Serious: Yes (Life-Threatening, Hospitalization, Other)
  Sender: FDA-Public Use
  Company Number: H-CH2005-10453

PATIENT
  Age: 23 Year
  Sex: Female

DRUGS (19)
  1. BOSENTAN(BOSENTAN I.PHS TABLET 125 MG)TABLET [Suspect]
     Indication: PULMONARY HYPERTENSION
     Dosage: SEE IMAGE
     Route: 048
     Dates: start: 20040705, end: 20040801
  2. BOSENTAN(BOSENTAN I.PHS TABLET 125 MG)TABLET [Suspect]
     Indication: PULMONARY HYPERTENSION
     Dosage: SEE IMAGE
     Route: 048
     Dates: start: 20040802, end: 20050228
  3. BOSENTAN(BOSENTAN I.PHS TABLET 125 MG)TABLET [Suspect]
     Indication: PULMONARY HYPERTENSION
     Dosage: SEE IMAGE
     Route: 048
     Dates: start: 20050314, end: 20050811
  4. MARCUMAR [Suspect]
     Dosage: O.D., DEPENDENT ON INR, ORAL
     Route: 048
     Dates: start: 20050101, end: 20050811
  5. IMURAN [Suspect]
     Dosage: 100 MG, OD, ORAL
     Route: 048
     Dates: start: 20031101, end: 20050811
  6. ALENDRONATE SODIUM [Concomitant]
  7. CALCICHEW (CALCIUM CARBONATE) [Concomitant]
  8. SINTROM MITIS (ACENOCOUMAROL) [Concomitant]
  9. HYDROCORT (HYDROCORTISONE ACETATE) [Concomitant]
  10. PREDNISONE [Concomitant]
  11. DESLORATADINE (DESLORATADINE) [Concomitant]
  12. OCULENTUM SIMPLEX (CETOSTEARYL ALCOHOL, WOOL FAT, PARAFFIN, PETROLATUM [Concomitant]
  13. MICROGYNON (ETHINYLESTRADIOL, LEVONORGESTREL) [Concomitant]
  14. ISOSORBIDE (ISOSORBIDE) [Concomitant]
  15. CALMURID (BETAINE, LACTIC ACID, UREA) [Concomitant]
  16. BETAMETHASONE [Concomitant]
  17. FUCIDINE CAP [Concomitant]
  18. HYDROCET (HYDROCODONE BITARTRATE, PARACETAMOL) [Concomitant]
  19. VASELINE (PARAFFIN SOFT) [Concomitant]

REACTIONS (33)
  - ABDOMINAL HAEMATOMA [None]
  - ABDOMINAL PAIN [None]
  - ASCITES [None]
  - AUTOIMMUNE HEPATITIS [None]
  - BLOOD ALBUMIN DECREASED [None]
  - BLOOD AMYLASE INCREASED [None]
  - BLOOD POTASSIUM DECREASED [None]
  - CHOLANGIOLITIS [None]
  - EROSIVE DUODENITIS [None]
  - GASTROINTESTINAL HAEMORRHAGE [None]
  - HAEMATEMESIS [None]
  - HAEMATOCRIT DECREASED [None]
  - HAEMOGLOBIN DECREASED [None]
  - HEPATIC FIBROSIS [None]
  - HEPATITIS [None]
  - HEPATOTOXICITY [None]
  - INTERNATIONAL NORMALISED RATIO INCREASED [None]
  - LIPASE INCREASED [None]
  - LYMPHOCYTE PERCENTAGE DECREASED [None]
  - MONOCYTE PERCENTAGE DECREASED [None]
  - NAUSEA [None]
  - PLASMA CELLS PRESENT [None]
  - PNEUMONIA VIRAL [None]
  - Q FEVER [None]
  - RED BLOOD CELLS URINE POSITIVE [None]
  - RETROPERITONEAL HAEMATOMA [None]
  - RIGHT VENTRICULAR FAILURE [None]
  - SARCOIDOSIS [None]
  - SMALL INTESTINAL HAEMORRHAGE [None]
  - VASCULITIS [None]
  - VENTRICULAR HYPERTROPHY [None]
  - VOMITING [None]
  - WEIL'S DISEASE [None]
